FAERS Safety Report 6568673-5 (Version None)
Quarter: 2010Q1

REPORT INFORMATION
  Report Type: 
  Country: None (occurrence: None)
  Receive Date: 20100203
  Receipt Date: 20100122
  Transmission Date: 20100710
  Serious: Yes (Other)
  Sender: FDA-Public Use
  Company Number: PHEH2010US01272

PATIENT
  Sex: Female

DRUGS (11)
  1. RECLAST [Suspect]
     Indication: OSTEOPENIA
     Dosage: 5 MG, UNK
     Dates: start: 20091130, end: 20091130
  2. TOPROL-XL [Concomitant]
     Indication: HYPERTENSION
  3. SPIRONOLACTONE [Concomitant]
  4. PREDNISONE [Concomitant]
     Dosage: 10 MG DAILY
  5. HYDROXYCHLOROQUINE SULFATE [Concomitant]
  6. DROSPIRENONE AND ETHINYL ESTRADIOL [Concomitant]
  7. NITROFURAN [Concomitant]
  8. VIOKASE [Concomitant]
  9. TYLENOL-500 [Concomitant]
     Dosage: 1000 MG
  10. ALLEGRA D 24 HOUR [Concomitant]
  11. PEPCID [Concomitant]
     Dosage: UNK

REACTIONS (8)
  - ARTHRALGIA [None]
  - DEHYDRATION [None]
  - HEADACHE [None]
  - HYPOKALAEMIA [None]
  - MYALGIA [None]
  - NAUSEA [None]
  - PAIN [None]
  - VOMITING [None]
